FAERS Safety Report 15554761 (Version 2)
Quarter: 2018Q4

REPORT INFORMATION
  Report Type: Report from Study
  Country: US (occurrence: US)
  Receive Date: 20181026
  Receipt Date: 20181106
  Transmission Date: 20190205
  Serious: Yes (Hospitalization)
  Sender: FDA-Public Use
  Company Number: PHEH2018US044789

PATIENT
  Sex: Male

DRUGS (1)
  1. COSENTYX [Suspect]
     Active Substance: SECUKINUMAB
     Indication: PSORIASIS
     Dosage: 300 MG, QW (EVERY WEEKS FOR 5 WEEKS AS DIRECTED)
     Route: 058
     Dates: start: 201510

REACTIONS (3)
  - Infection [Unknown]
  - Orchitis [Unknown]
  - Dysuria [Unknown]
